FAERS Safety Report 7523377-7 (Version None)
Quarter: 2011Q2

REPORT INFORMATION
  Report Type: 
  Country: None (occurrence: None)
  Receive Date: 20110603
  Receipt Date: 20110509
  Transmission Date: 20111010
  Serious: Yes (Hospitalization)
  Sender: FDA-Public Use
  Company Number: B0717723A

PATIENT
  Sex: Male

DRUGS (2)
  1. PREVISCAN [Concomitant]
     Indication: PULMONARY EMBOLISM
     Dosage: 1UNIT PER DAY
     Route: 048
     Dates: start: 20100803, end: 20100806
  2. ARIXTRA [Suspect]
     Indication: PULMONARY EMBOLISM
     Dosage: 7.5MG PER DAY
     Route: 058
     Dates: start: 20100804, end: 20100809

REACTIONS (2)
  - RENAL HAEMATOMA [None]
  - BACK PAIN [None]
